FAERS Safety Report 12825436 (Version 1)
Quarter: 2016Q4

REPORT INFORMATION
  Report Type: Spontaneous
  Country: US (occurrence: US)
  Receive Date: 20161007
  Receipt Date: 20161007
  Transmission Date: 20170207
  Serious: Yes (Hospitalization, Disabling)
  Sender: FDA-Public Use
  Company Number: US-PFIZER INC-2016464769

PATIENT
  Age: 51 Year
  Sex: Male
  Weight: 86 kg

DRUGS (3)
  1. LANTUS [Concomitant]
     Active Substance: INSULIN GLARGINE
     Indication: DIABETES MELLITUS
     Dosage: 50 IU, 2X/DAY
  2. METFORMIN [Concomitant]
     Active Substance: METFORMIN HYDROCHLORIDE
     Indication: DIABETES MELLITUS
     Dosage: UNK
  3. LYRICA [Suspect]
     Active Substance: PREGABALIN
     Indication: NEUROPATHY PERIPHERAL
     Dosage: 150 MG, 2X/DAY
     Route: 048
     Dates: start: 2012

REACTIONS (3)
  - Pulmonary thrombosis [Unknown]
  - Peripheral swelling [Unknown]
  - Thrombosis [Unknown]

NARRATIVE: CASE EVENT DATE: 201402
